FAERS Safety Report 6992904-0 (Version None)
Quarter: 2010Q3

REPORT INFORMATION
  Report Type: 
  Country: None (occurrence: None)
  Receive Date: 20100917
  Receipt Date: 20100906
  Transmission Date: 20110219
  Serious: Yes (Hospitalization, Other)
  Sender: FDA-Public Use
  Company Number: SA-PFIZER INC-2010112730

PATIENT
  Age: 28 Year
  Sex: Male

DRUGS (3)
  1. PHENYTOIN [Suspect]
     Dosage: 300 MG, 1X/DAY
  2. LEVETIRACETAM [Concomitant]
     Dosage: 1500 MG, 2X/DAY
  3. VALPROIC ACID [Concomitant]
     Dosage: 500 MG, 2X/DAY

REACTIONS (8)
  - AGITATION [None]
  - ANTICONVULSANT DRUG LEVEL ABOVE THERAPEUTIC [None]
  - DRUG TOXICITY [None]
  - PNEUMONIA ASPIRATION [None]
  - RESPIRATORY ACIDOSIS [None]
  - STATUS EPILEPTICUS [None]
  - TREATMENT NONCOMPLIANCE [None]
  - VOMITING [None]
